FAERS Safety Report 9116174 (Version 2)
Quarter: 2013Q1

REPORT INFORMATION
  Report Type: Spontaneous
  Country: US (occurrence: US)
  Receive Date: 20130225
  Receipt Date: 20130308
  Transmission Date: 20140127
  Serious: Yes (Other)
  Sender: FDA-Public Use
  Company Number: US-BANPHARM-20130852

PATIENT
  Age: 13 Year
  Sex: Male

DRUGS (3)
  1. VALPROIC ACID [Suspect]
     Dosage: 15 MG/KG, QD,
     Route: 048
  2. TEMSIROLIMUS [Concomitant]
     Dosage: 60 MG/M^2
     Route: 042
  3. DIPHENHYDRAMINE UNKNOWN PRODUCT [Concomitant]
     Dosage: 0.5-1 MG/KG TO A MAXIMUM DOSE OF 50 MG

REACTIONS (5)
  - Oesophagitis [Unknown]
  - Anal inflammation [Unknown]
  - Stomatitis [Unknown]
  - Anaphylactoid reaction [Unknown]
  - Fatigue [Unknown]
